FAERS Safety Report 8725738 (Version 3)
Quarter: 2012Q4

REPORT INFORMATION
  Report Type: Report from Study
  Country: BE (occurrence: BE)
  Receive Date: 20120816
  Receipt Date: 20121030
  Transmission Date: 20130627
  Serious: Yes (Hospitalization)
  Sender: FDA-Public Use
  Company Number: BE-AMGEN-BELCT2012050841

PATIENT
  Age: 37 Year
  Sex: Male

DRUGS (3)
  1. ETANERCEPT [Suspect]
     Indication: PSORIATIC ARTHROPATHY
     Dosage: 25 mg, 2x/week
     Route: 058
     Dates: start: 200408, end: 20050719
  2. ETANERCEPT [Suspect]
     Dosage: 50 mg, qwk
     Dates: start: 20050919
  3. NEORAL [Concomitant]
     Dosage: UNK
     Dates: start: 200207

REACTIONS (2)
  - Bursitis [Recovered/Resolved]
  - Cellulitis [Recovered/Resolved]
